FAERS Safety Report 8630748 (Version 2)
Quarter: 2012Q4

REPORT INFORMATION
  Report Type: 
  Country: US (occurrence: US)
  Receive Date: 20120622
  Receipt Date: 20120927
  Transmission Date: 20130627
  Serious: Yes (Hospitalization)
  Sender: FDA-Public Use
  Company Number: US-GLAXOSMITHKLINE-A0981878A

PATIENT
  Age: 76 Year
  Sex: Female

DRUGS (7)
  1. LOVAZA [Suspect]
     Indication: BLOOD CHOLESTEROL INCREASED
     Dosage: 2CAP Twice per day
     Route: 048
  2. EVISTA [Concomitant]
  3. PRAVASTATIN [Concomitant]
  4. TRICOR [Concomitant]
  5. DOXEPIN [Concomitant]
  6. CALCIUM + D [Concomitant]
  7. MULTIVITAMIN [Concomitant]

REACTIONS (6)
  - Visual acuity reduced [Not Recovered/Not Resolved]
  - Arteriovenous fistula [Recovering/Resolving]
  - Migraine [Recovered/Resolved]
  - Vision blurred [Not Recovered/Not Resolved]
  - Diplopia [Not Recovered/Not Resolved]
  - Tinnitus [Recovered/Resolved]
